FAERS Safety Report 12243762 (Version 1)
Quarter: 2016Q2

REPORT INFORMATION
  Report Type: Spontaneous
  Country: US (occurrence: US)
  Receive Date: 20160406
  Receipt Date: 20160406
  Transmission Date: 20160815
  Serious: No
  Sender: FDA-Public Use
  Company Number: US-GE HEALTHCARE MEDICAL DIAGNOSTICS-OSCN-PR-1601S-0003

PATIENT
  Age: 49 Year
  Sex: Female

DRUGS (2)
  1. OMNISCAN [Suspect]
     Active Substance: GADODIAMIDE
     Indication: DIAGNOSTIC PROCEDURE
  2. OMNISCAN [Suspect]
     Active Substance: GADODIAMIDE
     Indication: BREAST CANCER
     Route: 042
     Dates: start: 20160113, end: 20160113

REACTIONS (2)
  - Rash [Recovering/Resolving]
  - Erythema [Recovering/Resolving]

NARRATIVE: CASE EVENT DATE: 20160113
